FAERS Safety Report 7772881-5 (Version None)
Quarter: 2011Q3

REPORT INFORMATION
  Report Type: 
  Country: None (occurrence: None)
  Receive Date: 20110922
  Receipt Date: 20110913
  Transmission Date: 20111222
  Serious: Yes (Hospitalization, Other)
  Sender: FDA-Public Use
  Company Number: CA-SANOFI-AVENTIS-2011SA060501

PATIENT
  Age: 58 Year
  Sex: Male
  Weight: 114 kg

DRUGS (12)
  1. VALSARTAN [Concomitant]
     Dates: start: 20080101
  2. INSULIN TORONTO [Concomitant]
     Dates: start: 20080101
  3. GAVISCON [Concomitant]
     Dates: start: 20101201
  4. BLINDED THERAPY [Suspect]
     Route: 065
     Dates: start: 20100717, end: 20110512
  5. METFORMIN [Concomitant]
     Dates: start: 20040101
  6. BLINDED THERAPY [Suspect]
     Indication: ACUTE CORONARY SYNDROME
     Route: 065
     Dates: start: 20100521, end: 20100703
  7. METOPROLOL [Concomitant]
     Dates: start: 20080101
  8. PLAVIX [Suspect]
     Route: 065
     Dates: start: 20100516
  9. NOVOLIN 70/30 [Concomitant]
     Dates: start: 20080101
  10. NITROGLYCERIN [Concomitant]
     Dates: start: 20100704
  11. ASPIRIN [Concomitant]
     Dates: start: 20100517, end: 20110729
  12. DOMPERIDONE [Concomitant]
     Dates: start: 20110501

REACTIONS (10)
  - NAUSEA [None]
  - CHOLELITHIASIS [None]
  - DIARRHOEA [None]
  - ANXIETY [None]
  - ACUTE MYOCARDIAL INFARCTION [None]
  - ABDOMINAL DISTENSION [None]
  - INFLUENZA [None]
  - RASH [None]
  - MICTURITION URGENCY [None]
  - NON-CARDIAC CHEST PAIN [None]
